FAERS Safety Report 11464547 (Version 1)
Quarter: 2015Q3

REPORT INFORMATION
  Report Type: Spontaneous
  Country: US (occurrence: US)
  Receive Date: 20150831
  Receipt Date: 20150831
  Transmission Date: 20151125
  Serious: No
  Sender: FDA-Public Use
  Company Number: US-ELI_LILLY_AND_COMPANY-US200808002332

PATIENT

DRUGS (1)
  1. CYMBALTA [Suspect]
     Active Substance: DULOXETINE HYDROCHLORIDE
     Dosage: 1 D/F, UNK

REACTIONS (8)
  - Nausea [Unknown]
  - Vomiting [Unknown]
  - Restlessness [Unknown]
  - Anxiety [Unknown]
  - Weight increased [Unknown]
  - Dysuria [Unknown]
  - Insomnia [Unknown]
  - Sexual dysfunction [Unknown]
